FAERS Safety Report 18144752 (Version 1)
Quarter: 2020Q3

REPORT INFORMATION
  Report Type: Spontaneous
  Country: US (occurrence: US)
  Receive Date: 20200812
  Receipt Date: 20200812
  Transmission Date: 20201103
  Serious: No
  Sender: FDA-Public Use
  Company Number: None

PATIENT
  Age: 56 Year
  Sex: Male

DRUGS (4)
  1. OMEPRAZOLE. [Concomitant]
     Active Substance: OMEPRAZOLE
  2. HUMIRA [Suspect]
     Active Substance: ADALIMUMAB
     Indication: PSORIASIS
     Route: 058
  3. OLANZAPINE. [Concomitant]
     Active Substance: OLANZAPINE
  4. LITHIUM. [Concomitant]
     Active Substance: LITHIUM

REACTIONS (1)
  - Bone cancer [None]

NARRATIVE: CASE EVENT DATE: 20200811
